FAERS Safety Report 5420285-2 (Version None)
Quarter: 2007Q3

REPORT INFORMATION
  Report Type: 
  Country: None (occurrence: None)
  Receive Date: 20070815
  Receipt Date: 20070702
  Transmission Date: 20080115
  Serious: Yes (Death, Hospitalization)
  Sender: FDA-Public Use
  Company Number: 6035231

PATIENT
  Age: 44 Year
  Sex: Male

DRUGS (8)
  1. FLUPHENAZINE [Suspect]
     Indication: MENTAL DISORDER
     Dosage: 25 MG,2 IN 1 M, INTRAMUSCULAR; 40 MG (40 MG, 1 IN 1 D),  ORAL
     Route: 030
  2. HALOPERIDOL [Suspect]
     Indication: MENTAL DISORDER
     Dosage: 12 MG (12 MG, 1 IN 1 D), ORAL
     Route: 048
  3. OLANZAPINE [Suspect]
     Indication: MENTAL DISORDER
     Dosage: 30 MG (30 MG, 1 IN 1 D) ORAL
     Route: 048
  4. PAROXETINE [Suspect]
     Indication: MENTAL DISORDER
     Dosage: 20 MG (20 MG, 1 IN 1 D), ORAL
     Route: 048
  5. ALPRAZOLAM [Concomitant]
  6. BIPERIDEN HYDROCHLORIDE TAB [Concomitant]
  7. BROMAZEPAM (BROMAZEPAM) [Concomitant]
  8. DIAZEPAM [Concomitant]

REACTIONS (19)
  - BASE EXCESS DECREASED [None]
  - BLOOD BICARBONATE DECREASED [None]
  - BLOOD CHLORIDE DECREASED [None]
  - BRADYPNOEA [None]
  - BRAIN OEDEMA [None]
  - CARDIAC ARREST [None]
  - COMA [None]
  - DRUG INTERACTION [None]
  - GENERAL PHYSICAL HEALTH DETERIORATION [None]
  - HYPERGLYCAEMIA [None]
  - HYPOTENSION [None]
  - HYPOVENTILATION [None]
  - INAPPROPRIATE ANTIDIURETIC HORMONE SECRETION [None]
  - KETONURIA [None]
  - PANCREATITIS ACUTE [None]
  - PANCREATITIS HAEMORRHAGIC [None]
  - PCO2 DECREASED [None]
  - PO2 DECREASED [None]
  - VERTIGO [None]
